FAERS Safety Report 20663355 (Version 4)
Quarter: 2022Q2

REPORT INFORMATION
  Report Type: Spontaneous
  Country: DE (occurrence: DE)
  Receive Date: 20220401
  Receipt Date: 20220523
  Transmission Date: 20220720
  Serious: Yes (Death, Life-Threatening, Hospitalization, Other)
  Sender: FDA-Public Use
  Company Number: DE-BoehringerIngelheim-2022-BI-162853

PATIENT
  Age: 72 Year
  Sex: Female

DRUGS (12)
  1. EMPAGLIFLOZIN [Suspect]
     Active Substance: EMPAGLIFLOZIN
     Indication: Type 2 diabetes mellitus
     Dosage: 1-0-0
     Route: 048
     Dates: end: 20220104
  2. METFORMIN [Concomitant]
     Active Substance: METFORMIN HYDROCHLORIDE
     Indication: Product used for unknown indication
  3. Sitagliptin 50 mg [Concomitant]
     Indication: Type 2 diabetes mellitus
     Dosage: 1-0-1
     Route: 048
  4. RIVAROXABAN [Concomitant]
     Active Substance: RIVAROXABAN
     Indication: Product used for unknown indication
  5. ASPIRIN [Concomitant]
     Active Substance: ASPIRIN
     Indication: Product used for unknown indication
  6. DONEPEZIL [Concomitant]
     Active Substance: DONEPEZIL
     Indication: Product used for unknown indication
  7. AMLODIPINE BESYLATE [Concomitant]
     Active Substance: AMLODIPINE BESYLATE
     Indication: Product used for unknown indication
  8. ATORVASTATIN [Concomitant]
     Active Substance: ATORVASTATIN
     Indication: Product used for unknown indication
  9. RAMIPRIL [Concomitant]
     Active Substance: RAMIPRIL
     Indication: Product used for unknown indication
  10. METOPROLOL [Concomitant]
     Active Substance: METOPROLOL
     Indication: Product used for unknown indication
  11. PANTOZOL [Concomitant]
     Active Substance: PANTOPRAZOLE SODIUM
     Indication: Product used for unknown indication
  12. ACTRAPID [Concomitant]
     Active Substance: INSULIN HUMAN
     Indication: Blood glucose
     Dosage: ACCORDING TO BLOOD SUGAR

REACTIONS (8)
  - Cerebral infarction [Fatal]
  - Hemiparesis [Fatal]
  - Disease complication [Fatal]
  - Euglycaemic diabetic ketoacidosis [Recovered/Resolved]
  - Peripheral artery occlusion [Unknown]
  - Pneumonia aspiration [Unknown]
  - Hyperventilation [Unknown]
  - Somnolence [Unknown]

NARRATIVE: CASE EVENT DATE: 20211231
